FAERS Safety Report 7485079-5 (Version None)
Quarter: 2011Q2

REPORT INFORMATION
  Report Type: 
  Country: None (occurrence: None)
  Receive Date: 20110517
  Receipt Date: 20110509
  Transmission Date: 20111010
  Serious: Yes (Other)
  Sender: FDA-Public Use
  Company Number: GB-TEVA-280911ISR

PATIENT
  Sex: Male

DRUGS (2)
  1. ACETAMINOPHEN AND CODEINE PHOSPHATE [Concomitant]
  2. LOPERAMIDE [Suspect]
     Route: 048
     Dates: start: 20110329

REACTIONS (3)
  - EPISTAXIS [None]
  - RASH [None]
  - SKIN EXFOLIATION [None]
